FAERS Safety Report 7715082-9 (Version None)
Quarter: 2011Q3

REPORT INFORMATION
  Report Type: 
  Country: None (occurrence: None)
  Receive Date: 20110829
  Receipt Date: 20110815
  Transmission Date: 20111222
  Serious: Yes (Hospitalization)
  Sender: FDA-Public Use
  Company Number: PHHY2011BR73494

PATIENT
  Sex: Male

DRUGS (6)
  1. EXFORGE [Suspect]
     Dosage: 320/5 MG
  2. DIOVAN HCT [Suspect]
  3. MEDICATIONS FOR HIGH BLOOD PRESSURE [Concomitant]
     Indication: HYPERTENSION
  4. EXFORGE [Suspect]
     Dosage: 320/10 MG
  5. EXFORGE [Suspect]
     Dosage: 1 DF, UNK
  6. INSULIN [Concomitant]

REACTIONS (3)
  - DEPRESSION [None]
  - ANAEMIA [None]
  - RENAL DISORDER [None]
